FAERS Safety Report 4334999-9 (Version None)
Quarter: 2004Q2

REPORT INFORMATION
  Report Type: 
  Country: None (occurrence: None)
  Receive Date: 20040408
  Receipt Date: 20040329
  Transmission Date: 20050107
  Serious: Yes (Other)
  Sender: FDA-Public Use
  Company Number: PHEH2004US03563

PATIENT
  Age: 70 Year
  Sex: Male

DRUGS (4)
  1. LOTREL [Suspect]
     Indication: HYPERTENSION
     Dates: start: 20040301
  2. LIPITOR [Concomitant]
     Dates: start: 20040301
  3. CELEXA [Concomitant]
  4. PLAVIX [Concomitant]
     Dates: start: 20040301

REACTIONS (6)
  - BLOOD PRESSURE DECREASED [None]
  - CATHETERISATION CARDIAC [None]
  - CORONARY ARTERY ATHEROSCLEROSIS [None]
  - DIZZINESS [None]
  - FLUSHING [None]
  - STENT PLACEMENT [None]
